FAERS Safety Report 23042791 (Version 1)
Quarter: 2023Q4

REPORT INFORMATION
  Report Type: Other
  Country: CH (occurrence: CH)
  Receive Date: 20231009
  Receipt Date: 20231009
  Transmission Date: 20240110
  Serious: Yes (Life-Threatening, Hospitalization, Other)
  Sender: FDA-Public Use
  Company Number: CH-DEXPHARM-20232422

PATIENT
  Age: 17 Year
  Sex: Female

DRUGS (11)
  1. VENLAFAXINE [Interacting]
     Active Substance: VENLAFAXINE HYDROCHLORIDE
     Indication: Depression
     Dosage: VENLAFAXINE 24G (DRUG OVERDOSE)
  2. ZOLMITRIPTAN [Interacting]
     Active Substance: ZOLMITRIPTAN
  3. OXYCODONE [Interacting]
     Active Substance: OXYCODONE
  4. CAFFEINE\MECLIZINE MONOHYDROCHLORIDE\PYRIDOXINE HYDROCHLORIDE [Interacting]
     Active Substance: CAFFEINE\MECLIZINE MONOHYDROCHLORIDE\PYRIDOXINE HYDROCHLORIDE
  5. TRAMADOL [Interacting]
     Active Substance: TRAMADOL\TRAMADOL HYDROCHLORIDE
  6. NICOTINE [Interacting]
     Active Substance: NICOTINE
  7. LIDOCAINE [Interacting]
     Active Substance: LIDOCAINE
  8. METOPROLOL [Interacting]
     Active Substance: METOPROLOL
  9. METOCLOPRAMIDE [Interacting]
     Active Substance: METOCLOPRAMIDE
  10. NALOXONE [Interacting]
     Active Substance: NALOXONE
  11. CAFFEINE [Interacting]
     Active Substance: CAFFEINE

REACTIONS (17)
  - Toxicity to various agents [Recovered/Resolved]
  - Seizure [Recovered/Resolved]
  - Sinus tachycardia [Recovered/Resolved]
  - Atrial conduction time prolongation [Recovered/Resolved]
  - Akinesia [Recovered/Resolved]
  - Metabolic acidosis [Recovered/Resolved]
  - Cardiac arrest [Recovered/Resolved]
  - Serotonin syndrome [Recovered/Resolved]
  - Stress cardiomyopathy [Recovered/Resolved]
  - Disseminated intravascular coagulation [Recovered/Resolved]
  - Acute hepatic failure [Recovered/Resolved]
  - Lactic acidosis [Recovered/Resolved]
  - Acute kidney injury [Recovered/Resolved]
  - Anuria [Recovered/Resolved]
  - Intentional overdose [Recovered/Resolved]
  - Hypotension [Recovered/Resolved]
  - Drug interaction [Recovered/Resolved]
